FAERS Safety Report 4798154-0 (Version None)
Quarter: 2005Q4

REPORT INFORMATION
  Report Type: 
  Country: None (occurrence: None)
  Receive Date: 20051011
  Receipt Date: 20050928
  Transmission Date: 20060501
  Serious: Yes (Hospitalization, Other)
  Sender: FDA-Public Use
  Company Number: 2005136824

PATIENT
  Age: 66 Year
  Sex: Male

DRUGS (2)
  1. METHYLPREDNISOLONE [Suspect]
     Indication: NEPHRITIS
     Dosage: 1 GRAM (1 D),
  2. PREDNISOLONE [Suspect]
     Indication: NEPHRITIS
     Dosage: ORAL
     Route: 048

REACTIONS (4)
  - HAEMODIALYSIS [None]
  - OSTEONECROSIS [None]
  - RENAL FAILURE [None]
  - STAPHYLOCOCCAL INFECTION [None]
